FAERS Safety Report 5366887-3 (Version None)
Quarter: 2007Q2

REPORT INFORMATION
  Report Type: 
  Country: None (occurrence: None)
  Receive Date: 20070622
  Receipt Date: 20061020
  Transmission Date: 20071010
  Serious: No
  Sender: FDA-Public Use
  Company Number: US-ASTRAZENECA-2006UW20300

PATIENT
  Age: 56 Year
  Sex: Female

DRUGS (5)
  1. RHINOCORT [Suspect]
     Indication: HYPERSENSITIVITY
     Dosage: 120 METER SPRAY/UNIT
     Route: 045
     Dates: start: 20060801
  2. PREVACID [Concomitant]
  3. TOPAMAX [Concomitant]
  4. LEVOTHYROXINE SODIUM [Concomitant]
  5. CELEXA [Concomitant]

REACTIONS (2)
  - HEADACHE [None]
  - PALPITATIONS [None]
